FAERS Safety Report 5447902-5 (Version None)
Quarter: 2007Q3

REPORT INFORMATION
  Report Type: 
  Country: None (occurrence: None)
  Receive Date: 20070910
  Receipt Date: 20070829
  Transmission Date: 20080115
  Serious: Yes (Other)
  Sender: FDA-Public Use
  Company Number: US-PFIZER INC-2007072882

PATIENT
  Sex: Female
  Weight: 88.5 kg

DRUGS (6)
  1. CHANTIX [Interacting]
     Indication: SMOKING CESSATION THERAPY
     Route: 048
  2. AMOXICILLIN [Suspect]
     Indication: ORAL SURGERY
  3. ANALGESICS [Suspect]
     Indication: ORAL SURGERY
  4. PROZAC [Interacting]
  5. PREMARIN [Interacting]
  6. XANAX [Concomitant]

REACTIONS (7)
  - BONE DENSITY DECREASED [None]
  - DECREASED APPETITE [None]
  - DRUG INTERACTION [None]
  - MALAISE [None]
  - STOMACH DISCOMFORT [None]
  - TOOTH EXTRACTION [None]
  - TREMOR [None]
